FAERS Safety Report 4310242-1 (Version None)
Quarter: 2004Q1

REPORT INFORMATION
  Report Type: 
  Country: None (occurrence: None)
  Receive Date: 20040301
  Receipt Date: 20040301
  Transmission Date: 20041129
  Serious: Yes (Other)
  Sender: FDA-Public Use
  Company Number: None

PATIENT
  Age: 54 Year
  Sex: Female
  Weight: 53.5244 kg

DRUGS (1)
  1. PREFEST [Suspect]
     Indication: HOT FLUSH
     Dosage: 1 TABLET DAY ORAL
     Route: 048
     Dates: start: 20040220, end: 20040227

REACTIONS (4)
  - CRYING [None]
  - EMOTIONAL DISTRESS [None]
  - HOT FLUSH [None]
  - PHARMACEUTICAL PRODUCT COMPLAINT [None]
